FAERS Safety Report 4982265-0 (Version None)
Quarter: 2006Q2

REPORT INFORMATION
  Report Type: 
  Country: None (occurrence: None)
  Receive Date: 20060425
  Receipt Date: 20060317
  Transmission Date: 20061013
  Serious: Yes (Hospitalization)
  Sender: FDA-Public Use
  Company Number: CA-AMGEN-US172866

PATIENT
  Sex: Female

DRUGS (4)
  1. ENBREL [Suspect]
     Indication: PSORIATIC ARTHROPATHY
     Dates: start: 20050301, end: 20060301
  2. CELEBREX [Concomitant]
  3. RIVOTRIL [Concomitant]
  4. NORETHINDRONE [Concomitant]

REACTIONS (1)
  - MYELITIS [None]
